FAERS Safety Report 5563617-7 (Version None)
Quarter: 2007Q4

REPORT INFORMATION
  Report Type: 
  Country: None (occurrence: None)
  Receive Date: 20071214
  Receipt Date: 20071214
  Transmission Date: 20080405
  Serious: Yes (Life-Threatening)
  Sender: FDA-Public Use
  Company Number: None

PATIENT
  Age: 43 Year
  Sex: Female
  Weight: 81.1939 kg

DRUGS (1)
  1. CHANTIX [Suspect]
     Dosage: 0.5MG - 1MG TAB
     Dates: start: 20071129, end: 20071203

REACTIONS (1)
  - CONVULSION [None]
